FAERS Safety Report 9105142 (Version 1)
Quarter: 2013Q1

REPORT INFORMATION
  Report Type: Spontaneous
  Country: US (occurrence: US)
  Receive Date: 20130220
  Receipt Date: 20130220
  Transmission Date: 20140127
  Serious: Yes (Hospitalization)
  Sender: FDA-Public Use
  Company Number: US-PFIZER INC-2013061153

PATIENT
  Age: 62 Year
  Sex: Female
  Weight: 56.69 kg

DRUGS (3)
  1. CELEBREX [Suspect]
     Indication: BURSITIS
     Dosage: 200 MG, 1X/DAY
     Route: 048
     Dates: start: 201212, end: 201212
  2. ALLEGRA-D [Concomitant]
     Indication: SEASONAL ALLERGY
     Dosage: UNK
  3. FLONASE [Concomitant]
     Dosage: UNK
     Route: 045

REACTIONS (4)
  - Paraesthesia [Not Recovered/Not Resolved]
  - Burning sensation [Unknown]
  - Hypoaesthesia [Unknown]
  - Pain in extremity [Unknown]
